FAERS Safety Report 16614899 (Version 1)
Quarter: 2019Q3

REPORT INFORMATION
  Report Type: Spontaneous
  Country: FR (occurrence: FR)
  Receive Date: 20190723
  Receipt Date: 20190723
  Transmission Date: 20191004
  Serious: Yes (Hospitalization)
  Sender: FDA-Public Use
  Company Number: FR-TEVA-2019-FR-1081029

PATIENT
  Age: 54 Year
  Sex: Male
  Weight: 59 kg

DRUGS (5)
  1. BACTRIM [Suspect]
     Active Substance: SULFAMETHOXAZOLE\TRIMETHOPRIM
     Indication: DEVICE RELATED INFECTION
     Dosage: 2 DOSAGE FORMS DAILY;
     Route: 048
     Dates: start: 20151001, end: 20151008
  2. VANCOMYCINE [Suspect]
     Active Substance: VANCOMYCIN
     Indication: DIVERTICULITIS
     Dosage: 2 GRAM DAILY;
     Route: 042
     Dates: start: 20150912, end: 20150930
  3. IMIPENEM MONOHYDRATE [Suspect]
     Active Substance: IMIPENEM
     Dosage: 2000 MILLIGRAM DAILY;
     Route: 042
     Dates: start: 20150923, end: 20151001
  4. CLAMOXYL (AMOXICILLIN) [Suspect]
     Active Substance: AMOXICILLIN
     Indication: DEVICE RELATED INFECTION
     Dosage: 3 DOSAGE FORMS DAILY;
     Route: 048
     Dates: start: 20151001, end: 20151008
  5. CILASTATINE SODIQUE [Suspect]
     Active Substance: CILASTATIN SODIUM
     Dosage: 2000 MILLIGRAM DAILY;
     Route: 042
     Dates: start: 20150923, end: 20151001

REACTIONS (3)
  - Nephritis [Recovered/Resolved]
  - Eosinophilia [Recovered/Resolved]
  - Rash [Recovered/Resolved]

NARRATIVE: CASE EVENT DATE: 20151005
